FAERS Safety Report 18328639 (Version 1)
Quarter: 2020Q3

REPORT INFORMATION
  Report Type: Report from Study
  Country: CO (occurrence: CO)
  Receive Date: 20200930
  Receipt Date: 20200930
  Transmission Date: 20201103
  Serious: Yes (Death, Other)
  Sender: FDA-Public Use
  Company Number: CO-ASTELLAS-2020US004397

PATIENT
  Age: 51 Year
  Sex: Male

DRUGS (13)
  1. TACROLIMUS. [Suspect]
     Active Substance: TACROLIMUS
     Dosage: 4 MG ONCE DAILY
     Route: 048
     Dates: start: 20200509, end: 20200918
  2. SUCRALFATE. [Concomitant]
     Active Substance: SUCRALFATE
     Indication: GASTRITIS
     Dosage: 1 EVERY, EVERY 12 HOURS
     Route: 048
     Dates: start: 20190429
  3. TACROLIMUS. [Suspect]
     Active Substance: TACROLIMUS
     Dosage: 1 MG (1 CAPSULE OF 1MG) ONCE DAILY
     Route: 048
     Dates: start: 20200414, end: 20200508
  4. CALCIUM CARBONATE. [Concomitant]
     Active Substance: CALCIUM CARBONATE
     Indication: PRODUCT USED FOR UNKNOWN INDICATION
     Dosage: 1 EVERY, ONCE DAILY
     Route: 048
     Dates: start: 20190429
  5. FERROUS SULFATE. [Concomitant]
     Active Substance: FERROUS SULFATE
     Indication: PRODUCT USED FOR UNKNOWN INDICATION
     Dosage: 1 EVERY, ONCE DAILY
     Route: 048
     Dates: start: 20190429
  6. PREDNISOLONE. [Concomitant]
     Active Substance: PREDNISOLONE
     Indication: HEART TRANSPLANT
     Dosage: 2 EVERY, ONCE DAILY
     Route: 048
     Dates: start: 20190429
  7. TACROLIMUS. [Suspect]
     Active Substance: TACROLIMUS
     Indication: HEART TRANSPLANT
     Dosage: 4 MG, (4 CAPSULES OF 1MG) ONCE DAILY
     Route: 048
     Dates: start: 20190429, end: 201912
  8. MYCOPHENOLATE [Concomitant]
     Active Substance: MYCOPHENOLIC ACID
     Indication: HEART TRANSPLANT
     Route: 048
     Dates: start: 20190429, end: 20191005
  9. MYCOPHENOLATE [Concomitant]
     Active Substance: MYCOPHENOLIC ACID
     Route: 048
  10. OMEPRAZOLE. [Concomitant]
     Active Substance: OMEPRAZOLE
     Indication: PROPHYLAXIS AGAINST GASTROINTESTINAL ULCER
     Dosage: 1 EVERY, ONCE DAILY (BEFORE TRANSPLANT)
     Route: 048
  11. CALCIUM [Concomitant]
     Active Substance: CALCIUM
     Indication: PRODUCT USED FOR UNKNOWN INDICATION
     Dosage: UNK UNK, UNKNOWN FREQ.
     Route: 048
  12. TACROLIMUS. [Suspect]
     Active Substance: TACROLIMUS
     Dosage: 2 MG (2 CAPSULES OF 1MG) ONCE DAILY
     Route: 048
     Dates: start: 201912
  13. TACROLIMUS. [Suspect]
     Active Substance: TACROLIMUS
     Dosage: 4 MG (4 CAPSULES OF 1MG), ONCE DAILY (4 CAPSULE OF 1 MG)
     Route: 048
     Dates: start: 20200219, end: 20200413

REACTIONS (10)
  - Immunosuppressant drug level decreased [Recovering/Resolving]
  - Product use in unapproved indication [Unknown]
  - Intentional product use issue [Unknown]
  - Palpitations [Recovered/Resolved]
  - Infarction [Fatal]
  - Intentional product use issue [Unknown]
  - Hyperhidrosis [Fatal]
  - Product supply issue [Unknown]
  - Dyspepsia [Fatal]
  - Product supply issue [Unknown]

NARRATIVE: CASE EVENT DATE: 201912
